FAERS Safety Report 8418940 (Version 5)
Quarter: 2013Q2

REPORT INFORMATION
  Report Type: Report from Study
  Country: HK (occurrence: HK)
  Receive Date: 20120221
  Receipt Date: 20130415
  Transmission Date: 20140414
  Serious: Yes (Hospitalization)
  Sender: FDA-Public Use
  Company Number: HK-BRISTOL-MYERS SQUIBB COMPANY-16395204

PATIENT
  Age: 67 Year
  Sex: Male

DRUGS (8)
  1. BLINDED: SAXAGLIPTIN [Suspect]
     Indication: TYPE 2 DIABETES MELLITUS
     Dates: start: 20110211, end: 20110228
  2. METFORMIN HCL [Suspect]
     Indication: TYPE 2 DIABETES MELLITUS
  3. GLIBENCLAMIDE [Suspect]
     Indication: TYPE 2 DIABETES MELLITUS
  4. HUMULIN N [Suspect]
     Indication: TYPE 2 DIABETES MELLITUS
     Dosage: 30IU:UNK-4JAN2012?40IU/U:5JAN12-4FEB2012?36IU/U:5FEB2012-ONG
  5. BLINDED: PLACEBO [Suspect]
     Indication: TYPE 2 DIABETES MELLITUS
     Dates: start: 20110211, end: 20110228
  6. METOPROLOL TARTRATE [Suspect]
  7. PANADOL [Concomitant]
     Dates: start: 20120118, end: 20120124
  8. ASPIRIN [Concomitant]

REACTIONS (2)
  - Syncope [Recovered/Resolved]
  - Sick sinus syndrome [Recovered/Resolved]
